FAERS Safety Report 17247535 (Version 1)
Quarter: 2020Q1

REPORT INFORMATION
  Report Type: Spontaneous
  Country: CN (occurrence: CN)
  Receive Date: 20200108
  Receipt Date: 20200108
  Transmission Date: 20200409
  Serious: Yes (Life-Threatening, Hospitalization, Other)
  Sender: FDA-Public Use
  Company Number: CN-009507513-2001CHN000947

PATIENT
  Age: 53 Year
  Sex: Male
  Weight: 60 kg

DRUGS (1)
  1. TIENAM [Suspect]
     Active Substance: CILASTATIN SODIUM\IMIPENEM
     Indication: INFECTION
     Dosage: 500 MILLIGRAM, BID
     Dates: start: 20191212, end: 20191217

REACTIONS (9)
  - Nodal rhythm [Recovering/Resolving]
  - Confusional state [Recovering/Resolving]
  - Abdominal pain [Recovering/Resolving]
  - Loss of consciousness [Recovered/Resolved]
  - Electrocardiogram high voltage [Recovering/Resolving]
  - Diarrhoea [Recovering/Resolving]
  - Electrocardiogram ST-T change [Recovering/Resolving]
  - Heart rate decreased [Recovering/Resolving]
  - Hyperhidrosis [Recovering/Resolving]

NARRATIVE: CASE EVENT DATE: 20191218
